FAERS Safety Report 26083510 (Version 1)
Quarter: 2025Q4

REPORT INFORMATION
  Report Type: Spontaneous
  Country: US (occurrence: None)
  Receive Date: 20251124
  Receipt Date: 20251124
  Transmission Date: 20260117
  Serious: Yes (Hospitalization)
  Sender: FDA-CTU
  Company Number: None

PATIENT
  Sex: Female

DRUGS (10)
  1. LENALIDOMIDE [Suspect]
     Active Substance: LENALIDOMIDE
     Indication: Plasma cell myeloma in remission
     Dosage: OTHER FREQUENCY : EVERY DAY FOR 21 DAYS THEN FOLLOWED BY 7 DAYS OFF;?
     Route: 048
     Dates: start: 20250926
  2. VELCADE [Suspect]
     Active Substance: BORTEZOMIB
  3. ASPIRIN LOW EC [Concomitant]
  4. MINERALS\VITAMINS [Concomitant]
     Active Substance: MINERALS\VITAMINS
  5. CLARITIN [Concomitant]
     Active Substance: LORATADINE
  6. CLOTRIMAZOLE CRE 1% [Concomitant]
  7. LACTOBACILLU [Concomitant]
  8. MULTIVITAMIN ADLT 50+ [Concomitant]
  9. TYLENOL [Concomitant]
     Active Substance: ACETAMINOPHEN
  10. VALTREX [Concomitant]
     Active Substance: VALACYCLOVIR HYDROCHLORIDE

REACTIONS (7)
  - Renal injury [None]
  - Diarrhoea [None]
  - Thrombocytopenia [None]
  - Anaemia [None]
  - Asthenia [None]
  - Neutrophil count decreased [None]
  - Therapy interrupted [None]
